FAERS Safety Report 9380057 (Version 2)
Quarter: 2013Q3

REPORT INFORMATION
  Report Type: Spontaneous
  Country: FR (occurrence: FR)
  Receive Date: 20130702
  Receipt Date: 20130712
  Transmission Date: 20140515
  Serious: Yes (Other)
  Sender: FDA-Public Use
  Company Number: FR-JNJFOC-20130619313

PATIENT
  Age: 64 Year
  Sex: Female

DRUGS (1)
  1. TOPALGIC [Suspect]
     Indication: BACK PAIN
     Route: 048
     Dates: start: 20130619, end: 20130619

REACTIONS (5)
  - Loss of consciousness [Recovered/Resolved]
  - Muscular weakness [Not Recovered/Not Resolved]
  - Tremor [Not Recovered/Not Resolved]
  - Nausea [Not Recovered/Not Resolved]
  - Vomiting [Not Recovered/Not Resolved]
